FAERS Safety Report 11810446 (Version 3)
Quarter: 2017Q1

REPORT INFORMATION
  Report Type: Other
  Country: JP (occurrence: JP)
  Receive Date: 20151208
  Receipt Date: 20170324
  Transmission Date: 20170428
  Serious: Yes (Other)
  Sender: FDA-Public Use
  Company Number: JP-GUERBET LLC-1045176

PATIENT
  Age: 34 Year
  Sex: Female

DRUGS (1)
  1. LIPIODOL [Suspect]
     Active Substance: ETHIODIZED OIL
     Indication: HYSTEROSALPINGOGRAM

REACTIONS (3)
  - Abdominal pain upper [Unknown]
  - Medication residue present [Unknown]
  - Pyrexia [Unknown]
